FAERS Safety Report 25924019 (Version 1)
Quarter: 2025Q4

REPORT INFORMATION
  Report Type: Spontaneous
  Country: US (occurrence: None)
  Receive Date: 20251011
  Receipt Date: 20251011
  Transmission Date: 20260118
  Serious: Yes (Other)
  Sender: FDA-CTU
  Company Number: None

PATIENT
  Sex: Female

DRUGS (1)
  1. UP AND UP MICONAZOLE 7 [Suspect]
     Active Substance: MICONAZOLE NITRATE
     Indication: Fungal infection
     Dosage: OTHER FREQUENCY : 4-DAY;?
     Route: 061
     Dates: start: 20251003, end: 20251007

REACTIONS (1)
  - Cyst [None]

NARRATIVE: CASE EVENT DATE: 20251008
